FAERS Safety Report 4983537-6 (Version None)
Quarter: 2006Q2

REPORT INFORMATION
  Report Type: 
  Country: None (occurrence: None)
  Receive Date: 20060419
  Receipt Date: 20060407
  Transmission Date: 20061013
  Serious: Yes (Other)
  Sender: FDA-Public Use
  Company Number: 2006050118

PATIENT
  Sex: Male

DRUGS (1)
  1. ZELDOX (CAPSULES) (ZIPRASIDONE) [Suspect]
     Indication: REACTIVE PSYCHOSIS
     Dosage: 40 MG, ORAL
     Route: 048

REACTIONS (1)
  - DRUG DEPENDENCE [None]
